FAERS Safety Report 19885750 (Version 1)
Quarter: 2021Q3

REPORT INFORMATION
  Report Type: Spontaneous
  Country: US (occurrence: US)
  Receive Date: 20210927
  Receipt Date: 20210927
  Transmission Date: 20211014
  Serious: No
  Sender: FDA-Public Use
  Company Number: US-009507513-2109USA000572

PATIENT
  Age: 86 Year
  Sex: Female

DRUGS (2)
  1. PRINIVIL [Suspect]
     Active Substance: LISINOPRIL
     Indication: STRESS CARDIOMYOPATHY
     Dosage: UNK
  2. CARVEDILOL. [Suspect]
     Active Substance: CARVEDILOL
     Indication: STRESS CARDIOMYOPATHY
     Dosage: UNK

REACTIONS (1)
  - Drug intolerance [Unknown]
